FAERS Safety Report 9706459 (Version 1)
Quarter: 2013Q4

REPORT INFORMATION
  Report Type: Spontaneous
  Country: US (occurrence: US)
  Receive Date: 20131125
  Receipt Date: 20131125
  Transmission Date: 20140711
  Serious: Yes (Other)
  Sender: FDA-Public Use
  Company Number: 2012SP000477

PATIENT
  Age: 65 Year
  Sex: Male

DRUGS (2)
  1. AMIODARONE [Suspect]
     Indication: PRODUCT USED FOR UNKNOWN INDICATION
  2. AMIODARONE [Suspect]
     Indication: PRODUCT USED FOR UNKNOWN INDICATION

REACTIONS (2)
  - Lung disorder [Recovered/Resolved]
  - Lymphoid tissue hyperplasia [Recovered/Resolved]
